FAERS Safety Report 18156727 (Version 1)
Quarter: 2020Q3

REPORT INFORMATION
  Report Type: Spontaneous
  Country: US (occurrence: US)
  Receive Date: 20200815
  Receipt Date: 20200815
  Transmission Date: 20201103
  Serious: Yes (Other)
  Sender: FDA-Public Use
  Company Number: None

PATIENT
  Age: 60 Year
  Sex: Female
  Weight: 72 kg

DRUGS (1)
  1. MIRACLE MINERAL SOLUTION [Suspect]
     Active Substance: SODIUM CHLORITE
     Indication: PRODUCT USED FOR UNKNOWN INDICATION

REACTIONS (5)
  - Malaise [None]
  - Vomiting [None]
  - Hypertension [None]
  - Product odour abnormal [None]
  - Dyspnoea [None]

NARRATIVE: CASE EVENT DATE: 20200813
